FAERS Safety Report 11324778 (Version 5)
Quarter: 2017Q3

REPORT INFORMATION
  Report Type: Spontaneous
  Country: US (occurrence: US)
  Receive Date: 20150730
  Receipt Date: 20170705
  Transmission Date: 20171127
  Serious: Yes (Other)
  Sender: FDA-Public Use
  Company Number: US-IMPAX LABORATORIES, INC-2015-IPXL-00548

PATIENT
  Age: 73 Year
  Sex: Male
  Weight: 88 kg

DRUGS (28)
  1. RYTARY [Interacting]
     Active Substance: CARBIDOPA\LEVODOPA
     Dosage: 48.75/195 MG 4 CAPSULES, EVERY 5 HOURS
     Route: 048
     Dates: start: 20150228, end: 2015
  2. PRAMIPEXOLE. [Interacting]
     Active Substance: PRAMIPEXOLE
     Dosage: 0.125 MG, 3 /DAY AT 6 AM, 1PM AND 9PM
     Route: 048
  3. PRAMIPEXOLE. [Interacting]
     Active Substance: PRAMIPEXOLE
     Dosage: 0.25 MG, 3/DAY AT 6 AM, 4 PM AND 9 PM
     Route: 048
  4. PRAMIPEXOLE. [Interacting]
     Active Substance: PRAMIPEXOLE
     Dosage: 0.25 MG, 3/DAY AT 6 AM, 2 PM AND 9 PM
     Route: 048
  5. MULTIVITAMINS [Concomitant]
     Active Substance: VITAMINS
     Indication: PRODUCT USED FOR UNKNOWN INDICATION
     Dosage: UNK; AT 6 PM
     Route: 065
  6. DEPAKOTE [Concomitant]
     Active Substance: DIVALPROEX SODIUM
     Dosage: 250 MG ONE NIGHT, 500 MG THE NEXT AT 9 PM
     Route: 065
  7. CRESTOR [Concomitant]
     Active Substance: ROSUVASTATIN CALCIUM
     Indication: BLOOD CHOLESTEROL INCREASED
     Dosage: 5 MG, EVERY OTHER DAY
     Route: 065
  8. VITAMIN D [Concomitant]
     Active Substance: CHOLECALCIFEROL
     Indication: SUPPLEMENTATION THERAPY
     Dosage: 1000 UNITS; 2 DF; DAILY
     Route: 065
  9. DEPAKOTE [Concomitant]
     Active Substance: DIVALPROEX SODIUM
     Dosage: 500MG AT 9PM (ALTERNATING 1 CAPSULE 1 NIGHT; 2 CAPSULES THE NEXT NIGHT)
     Route: 065
  10. RYTARY [Suspect]
     Active Substance: CARBIDOPA\LEVODOPA
     Indication: PARKINSON^S DISEASE
     Dosage: 48.75/195 MG 5 CAPSULES, EVERY 6 HOURS
     Route: 048
     Dates: start: 20150225, end: 201502
  11. TAMSULOSIN HYDROCHLORIDE. [Concomitant]
     Active Substance: TAMSULOSIN HYDROCHLORIDE
     Indication: BENIGN PROSTATIC HYPERPLASIA
     Dosage: 0.4 MG, QD
     Route: 065
  12. VITAMIN D [Concomitant]
     Active Substance: CHOLECALCIFEROL
     Dosage: 2000 UNITS, QD
     Route: 065
  13. FLORAJEN 3 [Concomitant]
     Active Substance: PROBIOTICS NOS
     Indication: PRODUCT USED FOR UNKNOWN INDICATION
     Dosage: UNK; AT 2 PM
     Route: 065
  14. SINEMET [Concomitant]
     Active Substance: CARBIDOPA\LEVODOPA
     Dosage: 25/250 MG; 0.5 DF, PRN
     Route: 065
  15. ASPIRIN. [Concomitant]
     Active Substance: ASPIRIN
     Dosage: 81 MG, QD
     Route: 065
  16. VIAGRA [Concomitant]
     Active Substance: SILDENAFIL CITRATE
     Indication: PRODUCT USED FOR UNKNOWN INDICATION
     Dosage: 100 MG, PRN
     Route: 065
  17. TRAMADOL. [Concomitant]
     Active Substance: TRAMADOL
     Indication: PAIN
     Dosage: UNK, PRN
     Route: 065
  18. PRAMIPEXOLE. [Interacting]
     Active Substance: PRAMIPEXOLE
     Dosage: 0.25 MG, 3/DAY AT 6 AM, 2 PM AND 9 PM
     Route: 048
  19. PRAMIPEXOLE. [Interacting]
     Active Substance: PRAMIPEXOLE
     Dosage: 0.25 MG AT 6AM, 0.125 MG AT 2 PM AND 4PM; 0.25 MG AT 9PM
  20. SINEMET [Concomitant]
     Active Substance: CARBIDOPA\LEVODOPA
     Indication: PARKINSON^S DISEASE
     Dosage: 1 DF, 5 /DAY; AT 5:30-6 AM, 8:30-9AM, 12-12:30PM, 4-5PM AND 9PM
     Route: 065
  21. ASPIRIN. [Concomitant]
     Active Substance: ASPIRIN
     Indication: ANTICOAGULANT THERAPY
     Dosage: 325 MG, 2 /DAY
  22. CIPRO [Concomitant]
     Active Substance: CIPROFLOXACIN HYDROCHLORIDE
     Indication: PRODUCT USED FOR UNKNOWN INDICATION
     Dosage: 500 MG, AT 6 AM AND 8 PM
     Route: 065
  23. IRON [Concomitant]
     Active Substance: IRON
     Indication: PRODUCT USED FOR UNKNOWN INDICATION
     Dosage: 65 MG; AT 6PM
     Route: 065
  24. PRAMIPEXOLE. [Interacting]
     Active Substance: PRAMIPEXOLE
     Indication: PARKINSON^S DISEASE
     Dosage: 1.5 MG; 4 DF, DAILY
     Route: 048
  25. ASPIRIN. [Concomitant]
     Active Substance: ASPIRIN
     Indication: CARDIAC DISORDER
     Dosage: 81 MG, QD
     Route: 065
  26. RYTARY [Interacting]
     Active Substance: CARBIDOPA\LEVODOPA
     Dosage: 48.75/195 MG 3 CAPSULES, 4 TIMES DAILY; AT 6AM, 11AM, 4PM, AND 9PM
     Route: 048
     Dates: start: 2015
  27. DEPAKOTE [Concomitant]
     Active Substance: DIVALPROEX SODIUM
     Indication: PRODUCT USED FOR UNKNOWN INDICATION
     Dosage: 250 MG AT 6PM AND 500MG AT 9PM
     Route: 065
  28. AMOXICILLIN. [Concomitant]
     Active Substance: AMOXICILLIN
     Indication: PRODUCT USED FOR UNKNOWN INDICATION
     Dosage: 875 MG, AT 6AM AND 9 PM
     Route: 065
     Dates: start: 20151210

REACTIONS (10)
  - Drug effect variable [Unknown]
  - Mood altered [Recovered/Resolved]
  - Therapeutic response shortened [Unknown]
  - Depression [Recovered/Resolved]
  - Drug interaction [Unknown]
  - Crying [Unknown]
  - Feeling abnormal [Recovered/Resolved]
  - Tremor [Unknown]
  - Drug withdrawal syndrome [Recovering/Resolving]
  - Poor quality sleep [Recovered/Resolved]

NARRATIVE: CASE EVENT DATE: 201502
